FAERS Safety Report 19949249 (Version 3)
Quarter: 2022Q1

REPORT INFORMATION
  Report Type: Spontaneous
  Country: CA (occurrence: CA)
  Receive Date: 20211013
  Receipt Date: 20220325
  Transmission Date: 20220423
  Serious: Yes (Other)
  Sender: FDA-Public Use
  Company Number: CA-GLAXOSMITHKLINE-CA2021AMR195539

PATIENT
  Age: 30 Year
  Sex: Female

DRUGS (2)
  1. BENLYSTA [Suspect]
     Active Substance: BELIMUMAB
     Indication: Systemic lupus erythematosus
     Dosage: 10 MG/KG
  2. PREDNISONE [Concomitant]
     Active Substance: PREDNISONE
     Indication: Product used for unknown indication
     Dosage: 5 MG
     Dates: end: 20220221

REACTIONS (4)
  - Acute generalised exanthematous pustulosis [Unknown]
  - Rash [Recovered/Resolved]
  - Psoriasis [Unknown]
  - Rash pustular [Unknown]

NARRATIVE: CASE EVENT DATE: 20210801
